FAERS Safety Report 22527882 (Version 1)
Quarter: 2023Q2

REPORT INFORMATION
  Report Type: Report from Study
  Country: US (occurrence: US)
  Receive Date: 20230606
  Receipt Date: 20230606
  Transmission Date: 20230722
  Serious: Yes (Hospitalization)
  Sender: FDA-Public Use
  Company Number: US-BEIGENE-BGN-2023-005065

PATIENT

DRUGS (6)
  1. BRUKINSA [Suspect]
     Active Substance: ZANUBRUTINIB
     Indication: Plasma cell myeloma
     Dosage: 1C, BID
     Route: 048
     Dates: start: 20220412
  2. BIOTIN [Concomitant]
     Active Substance: BIOTIN
  3. ELIQUIS [Concomitant]
     Active Substance: APIXABAN
  4. IRON [Concomitant]
     Active Substance: IRON
  5. METOPROLOL [Concomitant]
     Active Substance: METOPROLOL
  6. VITAMIN B12 [Concomitant]
     Active Substance: CYANOCOBALAMIN

REACTIONS (5)
  - Gastrointestinal infection [Unknown]
  - Nausea [Unknown]
  - Haemoglobin decreased [Unknown]
  - Underdose [Unknown]
  - Off label use [Unknown]

NARRATIVE: CASE EVENT DATE: 20220412
